FAERS Safety Report 24992235 (Version 1)
Quarter: 2025Q1

REPORT INFORMATION
  Report Type: Spontaneous
  Country: US (occurrence: US)
  Receive Date: 20250220
  Receipt Date: 20250220
  Transmission Date: 20250409
  Serious: Yes (Hospitalization)
  Sender: TEVA
  Company Number: US-TEVA-VS-3298760

PATIENT
  Age: 49 Year
  Sex: Male

DRUGS (2)
  1. CARBAMAZEPINE [Interacting]
     Active Substance: CARBAMAZEPINE
     Indication: Seizure
     Route: 065
  2. TICAGRELOR [Interacting]
     Active Substance: TICAGRELOR
     Indication: Antiplatelet therapy
     Route: 065

REACTIONS (2)
  - Therapeutic product effect decreased [Unknown]
  - Drug interaction [Unknown]
